FAERS Safety Report 13242766 (Version 1)
Quarter: 2017Q1

REPORT INFORMATION
  Report Type: Spontaneous
  Country: DE (occurrence: DE)
  Receive Date: 20170216
  Receipt Date: 20170216
  Transmission Date: 20170428
  Serious: Yes (Congenital Anomaly, Other)
  Sender: FDA-Public Use
  Company Number: DE-MYLANLABS-2017M1009402

PATIENT

DRUGS (4)
  1. FOLIO                              /06866801/ [Concomitant]
     Indication: PROPHYLAXIS OF NEURAL TUBE DEFECT
     Dosage: 0.4 [MG/D ]
     Route: 064
  2. VENLAFAXINE [Suspect]
     Active Substance: VENLAFAXINE HYDROCHLORIDE
     Indication: ANXIETY DISORDER
     Dosage: 150 [MG/D ]
     Route: 064
     Dates: start: 20151212, end: 20160913
  3. MIRTAZAPINE. [Suspect]
     Active Substance: MIRTAZAPINE
     Indication: ANXIETY DISORDER
     Dosage: 15 [MG/D ]
     Route: 064
     Dates: start: 20151212, end: 20160913
  4. METOHEXAL                          /00376902/ [Suspect]
     Active Substance: METOPROLOL SUCCINATE
     Indication: HYPERTENSION
     Dosage: 142.5 [MG/D ]/ DOSAGE HAD TO BE INCREASED FROM 47.5MG/D IN THE 1ST TRIMESTER TO 142.5 MG/D IN THE 3R
     Route: 064
     Dates: start: 20151212, end: 20160913

REACTIONS (3)
  - Syndactyly [Not Recovered/Not Resolved]
  - Small for dates baby [Not Recovered/Not Resolved]
  - Polydactyly [Not Recovered/Not Resolved]

NARRATIVE: CASE EVENT DATE: 20160913
